FAERS Safety Report 23375955 (Version 1)
Quarter: 2024Q1

REPORT INFORMATION
  Report Type: Spontaneous
  Country: BG (occurrence: BG)
  Receive Date: 20240108
  Receipt Date: 20240108
  Transmission Date: 20240410
  Serious: Yes (Hospitalization)
  Sender: FDA-Public Use
  Company Number: BG-STRIDES ARCOLAB LIMITED-2024SP000150

PATIENT
  Age: 86 Year
  Sex: Male

DRUGS (10)
  1. OLANZAPINE [Suspect]
     Active Substance: OLANZAPINE
     Indication: Depression
     Dosage: 5 MILLIGRAM, DAILY (RECEIVING HALF A TABLET DAILY SINCE 6 YEARS)
     Route: 065
  2. BISOPROLOL FUMARATE [Suspect]
     Active Substance: BISOPROLOL FUMARATE
     Indication: Hypertension
     Dosage: 5 MILLIGRAM, (RECEIVING TWO TIMES HALF A TABLET SINCE 10 YEARS)
     Route: 065
  3. VENLAFAXINE [Suspect]
     Active Substance: VENLAFAXINE HYDROCHLORIDE
     Indication: Depression
     Dosage: 75 MILLIGRAM, BID (RECEIVING SINCE 6 YEARS)
     Route: 065
  4. DIGOXIN [Concomitant]
     Active Substance: DIGOXIN
     Indication: Cardiac failure congestive
     Dosage: UNK, PER DAY, RECEIVING HALF A TABLET
     Route: 065
  5. APIXABAN [Concomitant]
     Active Substance: APIXABAN
     Indication: Atrial fibrillation
     Dosage: 5 MILLIGRAM, RECEIVING 2 TIMES HALF A TABLET FROM 2/3 YEARS
     Route: 065
  6. ESOMEPRAZOLE [Concomitant]
     Active Substance: ESOMEPRAZOLE
     Indication: Gastritis
     Dosage: 40 MILLIGRAM, PER DAY (RECEIVING HALF A TABLET FROM 2 YEARS)
     Route: 065
  7. PREGABALIN [Concomitant]
     Active Substance: PREGABALIN
     Indication: Product used for unknown indication
     Dosage: 75 MILLIGRAM, PER DAY (RECEIVING FROM 6 YEARS)
     Route: 065
  8. BROMAZEPAM [Concomitant]
     Active Substance: BROMAZEPAM
     Indication: Insomnia
     Dosage: 3 MILLIGRAM, QOD (RECEIVING IN THE EVENING ONE OR HALF A TABLET, EVERY 2 DAYS FROM 30 YEARS)
     Route: 065
  9. QUETIAPINE [Concomitant]
     Active Substance: QUETIAPINE
     Indication: Depression
     Dosage: 25 MILLIGRAM, QOD  (RECEIVING IN THE EVENING ONE TO 2 TABLETS EVERY 2 DAYS FROM 5-6YEARS)
     Route: 065
  10. ZOPICLONE [Concomitant]
     Active Substance: ZOPICLONE
     Indication: Insomnia
     Dosage: 7.5 MILLIGRAM, QOD (RECEIVING ONE HALF TO ONE TABLET FROM 1 YEAR)
     Route: 065

REACTIONS (3)
  - Basal cell carcinoma [Recovered/Resolved]
  - Gliosis [Unknown]
  - Cerebral small vessel ischaemic disease [Unknown]
